FAERS Safety Report 9177955 (Version 1)
Quarter: 2013Q1

REPORT INFORMATION
  Report Type: Spontaneous
  Country: US (occurrence: None)
  Receive Date: 20130315
  Receipt Date: 20130315
  Transmission Date: 20140127
  Serious: Yes (Other)
  Sender: FDA-Public Use
  Company Number: 1622948

PATIENT
  Age: 49 Year
  Sex: Female

DRUGS (1)
  1. CARBOPLATIN INJECTION CARBOPLATIN 600MG/.60ML INJECTION VIAL (CARBOPLATIN) [Suspect]
     Indication: PRODUCT USED FOR UNKNOWN INDICATION
     Route: 041
     Dates: start: 20130222

REACTIONS (4)
  - Chest discomfort [None]
  - Hypersensitivity [None]
  - Hyperhidrosis [None]
  - Infusion related reaction [None]
